FAERS Safety Report 8282165-7 (Version None)
Quarter: 2012Q2

REPORT INFORMATION
  Report Type: 
  Country: None (occurrence: None)
  Receive Date: 20120413
  Receipt Date: 20120409
  Transmission Date: 20120825
  Serious: Yes (Other)
  Sender: FDA-Public Use
  Company Number: PHHY2012BR030414

PATIENT
  Sex: Male
  Weight: 76 kg

DRUGS (11)
  1. DIOVAN HCT [Suspect]
     Dosage: 1 DF (320/12.5MG) DAILY
     Route: 048
  2. VITALUX PLUS [Suspect]
     Dosage: 5 MG, DAILY
     Route: 048
  3. DIOVAN HCT [Suspect]
     Indication: HYPERTENSION
     Dosage: 1 DF (160/12.5 MG), DAILY
  4. AMARYL [Concomitant]
     Indication: DIABETES MELLITUS
     Dosage: 4 MG, DAILY
  5. VASOGARD [Concomitant]
     Indication: POOR PERIPHERAL CIRCULATION
     Dosage: 100 MG,DAILY
     Route: 048
  6. ATENOLOL [Concomitant]
     Indication: HYPERTENSION
     Dosage: 50 MG, BID
     Route: 048
  7. GALVUS [Suspect]
     Indication: DIABETES MELLITUS
     Dosage: 50 MG,DAILY
     Route: 048
  8. LEVOTHYROXINE SODIUM [Concomitant]
     Indication: HYPERTHYROIDISM
     Dosage: 75 UG, DAILY
     Route: 048
  9. PLAKETAR [Concomitant]
     Indication: POOR PERIPHERAL CIRCULATION
     Dosage: 250 MG, (1 DF AT THE MORNING AND 1 DF AT NIGHT)
     Route: 048
  10. SIMVASTAMED [Concomitant]
     Indication: POOR PERIPHERAL CIRCULATION
     Dosage: 20 MG, DAILY
     Route: 048
  11. INSULIN [Concomitant]
     Indication: DIABETES MELLITUS
     Dosage: 18 IU, BID
     Route: 058

REACTIONS (2)
  - CEREBROVASCULAR ACCIDENT [None]
  - BLOOD PRESSURE INCREASED [None]
